FAERS Safety Report 9733038 (Version 2)
Quarter: 2013Q4

REPORT INFORMATION
  Report Type: Spontaneous
  Country: US (occurrence: US)
  Receive Date: 20131204
  Receipt Date: 20131204
  Transmission Date: 20140711
  Serious: No
  Sender: FDA-Public Use
  Company Number: US-GILEAD-2009-0022307

PATIENT
  Sex: Female
  Weight: 70.31 kg

DRUGS (13)
  1. LETAIRIS [Suspect]
     Indication: PULMONARY ARTERIAL HYPERTENSION
     Route: 048
     Dates: start: 20071211
  2. REVATIO [Concomitant]
     Dates: start: 20080429
  3. COUMADIN [Concomitant]
  4. OXYGEN [Concomitant]
  5. LISINOPRIL [Concomitant]
  6. ALDACTONE [Concomitant]
  7. BUMEX [Concomitant]
  8. SPIRIVA [Concomitant]
  9. ALBUTEROL [Concomitant]
  10. MAG-OX [Concomitant]
  11. POTASSIUM CHLO [Concomitant]
  12. PREVACID [Concomitant]
  13. FOLBIC [Concomitant]

REACTIONS (1)
  - Renal impairment [Unknown]
